FAERS Safety Report 22306565 (Version 3)
Quarter: 2023Q2

REPORT INFORMATION
  Report Type: Report from Study
  Country: AR (occurrence: AR)
  Receive Date: 20230511
  Receipt Date: 20230617
  Transmission Date: 20230722
  Serious: Yes (Life-Threatening, Other)
  Sender: FDA-Public Use
  Company Number: AR-002147023-NVSC2022AR039988

PATIENT
  Age: 62 Year
  Sex: Male

DRUGS (3)
  1. COSENTYX [Suspect]
     Active Substance: SECUKINUMAB
     Indication: Axial spondyloarthritis
     Dosage: 150 MG, QMO
     Route: 058
     Dates: start: 20220115
  2. COSENTYX [Suspect]
     Active Substance: SECUKINUMAB
     Dosage: 150 MG, QMO
     Route: 058
     Dates: start: 20220128
  3. COSENTYX [Suspect]
     Active Substance: SECUKINUMAB
     Dosage: UNK UNK, Q2W
     Route: 065
     Dates: start: 202305

REACTIONS (23)
  - Axial spondyloarthritis [Unknown]
  - Polyneuropathy [Unknown]
  - Dysuria [Unknown]
  - Malaise [Unknown]
  - Cystitis noninfective [Unknown]
  - Inflammation [Unknown]
  - Back pain [Recovering/Resolving]
  - Fall [Unknown]
  - SARS-CoV-2 test positive [Unknown]
  - Ageusia [Unknown]
  - Anosmia [Unknown]
  - Spinal disorder [Unknown]
  - Posture abnormal [Unknown]
  - Pain [Unknown]
  - Depressed mood [Unknown]
  - Muscle discomfort [Unknown]
  - Limb injury [Unknown]
  - Joint injury [Unknown]
  - Arthritis [Unknown]
  - Arthralgia [Unknown]
  - Gait disturbance [Unknown]
  - Inappropriate schedule of product administration [Unknown]
  - Drug ineffective [Unknown]

NARRATIVE: CASE EVENT DATE: 20220122
